FAERS Safety Report 9477990 (Version 3)
Quarter: 2013Q3

REPORT INFORMATION
  Report Type: Spontaneous
  Country: JP (occurrence: JP)
  Receive Date: 20130827
  Receipt Date: 20130916
  Transmission Date: 20140515
  Serious: Yes (Death)
  Sender: FDA-Public Use
  Company Number: PHHY2013JP088858

PATIENT
  Age: 75 Year
  Sex: Male

DRUGS (2)
  1. IMATINIB [Suspect]
     Indication: NEOPLASM MALIGNANT
     Dosage: 600 MG, DAILY
     Route: 048
  2. IMATINIB [Suspect]
     Dosage: 400 MG, DAILY
     Route: 048

REACTIONS (4)
  - Pleural effusion [Fatal]
  - Neoplasm malignant [Fatal]
  - Malignant neoplasm progression [Fatal]
  - Treatment failure [Unknown]
